FAERS Safety Report 21348584 (Version 1)
Quarter: 2022Q3

REPORT INFORMATION
  Report Type: Spontaneous
  Country: US (occurrence: None)
  Receive Date: 20220916
  Receipt Date: 20220916
  Transmission Date: 20221027
  Serious: Yes (Hospitalization)
  Sender: FDA-Public Use
  Company Number: None

PATIENT
  Age: 61 Year
  Sex: Female
  Weight: 108.86 kg

DRUGS (16)
  1. ROZLYTREK [Suspect]
     Active Substance: ENTRECTINIB
     Indication: Lung neoplasm malignant
     Dosage: FREQUENCY : DAILY;?
     Route: 048
  2. ALBUTEROL [Concomitant]
     Active Substance: ALBUTEROL
  3. AMIODARONE [Concomitant]
     Active Substance: AMIODARONE
  4. AMOXICILLIN [Concomitant]
     Active Substance: AMOXICILLIN
  5. ASPIRIN [Concomitant]
     Active Substance: ASPIRIN
  6. AUGMENTIN [Concomitant]
     Active Substance: AMOXICILLIN\CLAVULANATE POTASSIUM
  7. CALCIUM [Concomitant]
     Active Substance: CALCIUM
  8. CAROPLATIN [Concomitant]
  9. CIPRO [Concomitant]
     Active Substance: CIPROFLOXACIN HYDROCHLORIDE
  10. DOCUSATE [Concomitant]
     Active Substance: DOCUSATE
  11. VITAMIN D [Concomitant]
     Active Substance: VITAMIN D NOS
  12. LASIX [Concomitant]
     Active Substance: FUROSEMIDE
  13. LORAZEPAM [Concomitant]
     Active Substance: LORAZEPAM
  14. PREDNISONE [Concomitant]
     Active Substance: PREDNISONE
  15. HERBALS\TURMERIC [Concomitant]
     Active Substance: HERBALS\TURMERIC
  16. TYLENOL [Concomitant]
     Active Substance: ACETAMINOPHEN

REACTIONS (2)
  - Pulmonary oedema [None]
  - Lower respiratory tract infection [None]
